FAERS Safety Report 9729303 (Version 1)
Quarter: 2013Q4

REPORT INFORMATION
  Report Type: Spontaneous
  Country: US (occurrence: US)
  Receive Date: 20131204
  Receipt Date: 20131204
  Transmission Date: 20140711
  Serious: Yes (Hospitalization)
  Sender: FDA-Public Use
  Company Number: US-BAYER-2013-147481

PATIENT
  Age: 34 Year
  Sex: Female
  Weight: 58 kg

DRUGS (4)
  1. YAZ [Suspect]
     Indication: MENOMETRORRHAGIA
  2. PAROXETINE HYDROCHLORIDE [Concomitant]
     Indication: ANXIETY
     Dosage: 30 MG, UNK
     Dates: start: 20070108, end: 20080123
  3. SYNTHROID [Concomitant]
     Dosage: 25 MCG
     Dates: start: 20071018, end: 20080123
  4. FLUOXETINE [Concomitant]
     Dosage: 20 MG, UNK
     Dates: start: 20071112

REACTIONS (1)
  - Pulmonary embolism [Recovered/Resolved]
